FAERS Safety Report 6983409-1 (Version None)
Quarter: 2010Q3

REPORT INFORMATION
  Report Type: 
  Country: None (occurrence: None)
  Receive Date: 20100914
  Receipt Date: 20100914
  Transmission Date: 20110219
  Serious: Yes (Hospitalization)
  Sender: FDA-Public Use
  Company Number: None

PATIENT
  Sex: Male
  Weight: 114.5 kg

DRUGS (2)
  1. FLUOROURACIL [Suspect]
     Dosage: 82680 MG
     Dates: end: 20070228
  2. ELOXATIN [Suspect]
     Dosage: 2102 MG
     Dates: end: 20061206

REACTIONS (2)
  - ACUTE MYELOMONOCYTIC LEUKAEMIA [None]
  - DYSPNOEA [None]
